FAERS Safety Report 6096914-X (Version None)
Quarter: 2009Q1

REPORT INFORMATION
  Report Type: 
  Country: None (occurrence: None)
  Receive Date: 20090227
  Receipt Date: 20081212
  Transmission Date: 20090719
  Serious: Yes (Hospitalization)
  Sender: FDA-Public Use
  Company Number: US-PFIZER INC-2008098691

PATIENT
  Sex: Male
  Weight: 95.24 kg

DRUGS (9)
  1. DOXORUBICIN HYDROCHLORIDE [Suspect]
     Indication: DIFFUSE LARGE B-CELL LYMPHOMA
     Dosage: 50 MG
     Route: 042
     Dates: start: 20080724
  2. PREDNISONE [Suspect]
     Indication: DIFFUSE LARGE B-CELL LYMPHOMA
     Dosage: 100 MG; DAYS 1-5
     Route: 048
     Dates: start: 20080724
  3. CYCLOPHOSPHAMIDE [Suspect]
     Dosage: 750 MG/M2 ON DAY 1
     Route: 042
     Dates: start: 20080724
  4. VINCRISTINE SULFATE [Suspect]
     Indication: DIFFUSE LARGE B-CELL LYMPHOMA
     Dosage: 1.4 MG/M2
     Route: 042
     Dates: start: 20080724
  5. RITUXIMAB [Suspect]
     Indication: DIFFUSE LARGE B-CELL LYMPHOMA
     Dosage: 375 MG/M2 ON DAY 1
     Route: 042
     Dates: start: 20080724
  6. ENZASTAURINE [Suspect]
     Indication: DIFFUSE LARGE B-CELL LYMPHOMA
     Dosage: 1125 MG, 1X/DAY
     Route: 048
     Dates: start: 20080724, end: 20080724
  7. ALLOPURINOL [Concomitant]
  8. POTASSIUM CHLORIDE [Concomitant]
  9. TYLENOL (CAPLET) [Concomitant]
     Dates: start: 20081102

REACTIONS (3)
  - ABDOMINAL PAIN [None]
  - DIARRHOEA [None]
  - WEIGHT DECREASED [None]
